FAERS Safety Report 6300110-8 (Version None)
Quarter: 2009Q3

REPORT INFORMATION
  Report Type: 
  Country: None (occurrence: None)
  Receive Date: 20090806
  Receipt Date: 20090731
  Transmission Date: 20100115
  Serious: Yes (Life-Threatening, Hospitalization)
  Sender: FDA-Public Use
  Company Number: FR-GILEAD-2009-0023412

PATIENT
  Sex: Female

DRUGS (14)
  1. TRUVADA [Suspect]
     Indication: HIV INFECTION
     Route: 048
     Dates: start: 20090505, end: 20090516
  2. SUSTIVA [Suspect]
     Indication: HIV INFECTION
     Dates: start: 20090505, end: 20090516
  3. FUZEON [Suspect]
     Indication: HIV INFECTION
     Route: 058
     Dates: start: 20090505, end: 20090516
  4. RIFADIN [Suspect]
     Indication: TUBERCULOSIS
     Route: 048
     Dates: start: 20090503, end: 20090516
  5. RIFADIN [Suspect]
     Dates: start: 20090525
  6. MYAMBUTOL [Suspect]
     Indication: TUBERCULOSIS
     Route: 048
     Dates: start: 20090425, end: 20090516
  7. MYAMBUTOL [Suspect]
     Dates: start: 20090525
  8. PIRILENE [Suspect]
     Indication: TUBERCULOSIS
     Route: 048
     Dates: start: 20090425, end: 20090516
  9. RIMIFON [Suspect]
     Indication: TUBERCULOSIS
     Dates: start: 20090425, end: 20090516
  10. SINGULAIR [Suspect]
     Indication: IMMUNE RECONSTITUTION SYNDROME
     Route: 048
     Dates: start: 20090511, end: 20090516
  11. BACTRIM [Suspect]
     Indication: ANTIFUNGAL PROPHYLAXIS
     Route: 048
     Dates: start: 20090425, end: 20090516
  12. IMOVANE [Suspect]
     Indication: INSOMNIA
     Route: 048
     Dates: start: 20090427, end: 20090516
  13. ANSATIPINE [Concomitant]
     Indication: TUBERCULOSIS
     Dates: start: 20090424, end: 20090503
  14. ZECLAR [Concomitant]
     Indication: TUBERCULOSIS
     Dates: start: 20090424, end: 20090503

REACTIONS (4)
  - CHOLANGITIS [None]
  - GRANULOMATOUS LIVER DISEASE [None]
  - HEPATITIS FULMINANT [None]
  - IMMUNE RECONSTITUTION SYNDROME [None]
